FAERS Safety Report 9351355 (Version 1)
Quarter: 2013Q2

REPORT INFORMATION
  Report Type: Spontaneous
  Country: US (occurrence: US)
  Receive Date: 20130617
  Receipt Date: 20130617
  Transmission Date: 20140414
  Serious: Yes (Hospitalization)
  Sender: FDA-Public Use
  Company Number: US-BAXTER-2013BAX021085

PATIENT
  Age: 65 Year
  Sex: Female

DRUGS (1)
  1. DIANEAL LOW CALCIUM [Suspect]
     Indication: PERITONEAL DIALYSIS
     Route: 033

REACTIONS (7)
  - Urinary tract infection [Unknown]
  - Diverticulitis [Unknown]
  - Dehydration [Unknown]
  - Hypotension [Unknown]
  - Malaise [Unknown]
  - Fluid intake reduced [Unknown]
  - Hypophagia [Unknown]
